FAERS Safety Report 26053291 (Version 1)
Quarter: 2025Q4

REPORT INFORMATION
  Report Type: Spontaneous
  Country: US (occurrence: None)
  Receive Date: 20251115
  Receipt Date: 20251115
  Transmission Date: 20260118
  Serious: Yes (Hospitalization)
  Sender: FDA-CTU
  Company Number: None

PATIENT
  Age: 81 Year
  Sex: Male
  Weight: 70.8 kg

DRUGS (1)
  1. LOMUSTINE [Suspect]
     Active Substance: LOMUSTINE
     Dates: end: 20251030

REACTIONS (2)
  - Urinary tract infection [None]
  - Hemiparesis [None]

NARRATIVE: CASE EVENT DATE: 20251106
